FAERS Safety Report 4642955-6 (Version None)
Quarter: 2005Q2

REPORT INFORMATION
  Report Type: 
  Country: None (occurrence: None)
  Receive Date: 20050421
  Receipt Date: 20050217
  Transmission Date: 20051028
  Serious: Yes (Life-Threatening)
  Sender: FDA-Public Use
  Company Number: 2005032920

PATIENT
  Age: 62 Year
  Sex: Female

DRUGS (1)
  1. BEXTRA [Suspect]
     Indication: ARTHRALGIA
     Dosage: 20 MG 1 IN 1 D, ORAL
     Route: 048
     Dates: start: 20041111, end: 20041112

REACTIONS (2)
  - ANGINA PECTORIS [None]
  - THROAT TIGHTNESS [None]
